FAERS Safety Report 16460572 (Version 1)
Quarter: 2019Q2

REPORT INFORMATION
  Report Type: Spontaneous
  Country: US (occurrence: US)
  Receive Date: 20190620
  Receipt Date: 20190620
  Transmission Date: 20190711
  Serious: No
  Sender: FDA-Public Use
  Company Number: US-FERRINGPH-2019FE03160

PATIENT
  Age: 58 Year
  Sex: Female
  Weight: 68.27 kg

DRUGS (1)
  1. CLENPIQ [Suspect]
     Active Substance: ANHYDROUS CITRIC ACID\MAGNESIUM OXIDE\SODIUM PICOSULFATE
     Indication: STOMACH SCAN
     Dosage: UNK
     Route: 048
     Dates: start: 2019, end: 2019

REACTIONS (3)
  - Product use in unapproved indication [Recovered/Resolved]
  - Retching [Unknown]
  - Vomiting [Unknown]

NARRATIVE: CASE EVENT DATE: 2019
